FAERS Safety Report 13087290 (Version 3)
Quarter: 2017Q1

REPORT INFORMATION
  Report Type: Spontaneous
  Country: US (occurrence: US)
  Receive Date: 20170105
  Receipt Date: 20170302
  Transmission Date: 20170428
  Serious: Yes (Hospitalization, Other)
  Sender: FDA-Public Use
  Company Number: US-B.I. PHARMACEUTICALS,INC./RIDGEFIELD-2017-BI-000240

PATIENT
  Sex: Female

DRUGS (5)
  1. ATORVASTATIN [Concomitant]
     Active Substance: ATORVASTATIN
     Indication: BLOOD CHOLESTEROL INCREASED
     Route: 065
  2. ALBUTEROL. [Concomitant]
     Active Substance: ALBUTEROL
     Indication: PRODUCT USED FOR UNKNOWN INDICATION
     Route: 065
  3. AMLODIPINE [Concomitant]
     Active Substance: AMLODIPINE BESYLATE
     Indication: HYPERTENSION
     Route: 065
     Dates: start: 2016
  4. SPIRIVA [Suspect]
     Active Substance: TIOTROPIUM BROMIDE MONOHYDRATE
     Indication: CHRONIC OBSTRUCTIVE PULMONARY DISEASE
     Route: 055
  5. CITALOPRAM [Concomitant]
     Active Substance: CITALOPRAM HYDROBROMIDE
     Indication: NERVE INJURY
     Route: 065

REACTIONS (14)
  - Gastrooesophageal reflux disease [Not Recovered/Not Resolved]
  - Dry throat [Recovered/Resolved]
  - Pollakiuria [Not Recovered/Not Resolved]
  - Finger deformity [Not Recovered/Not Resolved]
  - Cataract [Not Recovered/Not Resolved]
  - Cataract [Recovered/Resolved with Sequelae]
  - Renal cyst [Not Recovered/Not Resolved]
  - Lung neoplasm malignant [Not Recovered/Not Resolved]
  - Feeling abnormal [Unknown]
  - Sleep disorder [Not Recovered/Not Resolved]
  - Haematemesis [Recovered/Resolved]
  - Pneumonia [Recovered/Resolved]
  - Trigger finger [Not Recovered/Not Resolved]
  - Nasopharyngitis [Recovered/Resolved]

NARRATIVE: CASE EVENT DATE: 2012
